FAERS Safety Report 19778682 (Version 1)
Quarter: 2021Q3

REPORT INFORMATION
  Report Type: Spontaneous
  Country: US (occurrence: US)
  Receive Date: 20210902
  Receipt Date: 20210902
  Transmission Date: 20211014
  Serious: No
  Sender: FDA-Public Use
  Company Number: US-JNJFOC-20210846206

PATIENT
  Age: 69 Year
  Sex: Female
  Weight: 95.25 kg

DRUGS (7)
  1. CORTISONE [Concomitant]
     Active Substance: CORTISONE
     Indication: MUSCULOSKELETAL STIFFNESS
  2. IBUPROFEN. [Concomitant]
     Active Substance: IBUPROFEN
     Indication: MUSCULOSKELETAL STIFFNESS
     Route: 065
  3. COVID?19 VACCINE [Concomitant]
     Indication: IMMUNISATION
     Route: 030
     Dates: start: 20210318
  4. COVID?19 VACCINE [Concomitant]
     Route: 030
     Dates: start: 20210218
  5. EXCEDRIN [ACETYLSALICYLIC ACID;CAFFEINE;PARACETAMOL;SALICYLAMIDE] [Concomitant]
     Active Substance: ACETAMINOPHEN\ASPIRIN\CAFFEINE\SALICYLAMIDE
     Indication: MUSCULOSKELETAL STIFFNESS
     Route: 065
  6. TYLENOL [Suspect]
     Active Substance: ACETAMINOPHEN
     Indication: MUSCULOSKELETAL STIFFNESS
     Route: 065
     Dates: start: 2021
  7. CORTISONE [Concomitant]
     Active Substance: CORTISONE
     Indication: SWELLING
     Route: 065

REACTIONS (1)
  - Expired product administered [Unknown]

NARRATIVE: CASE EVENT DATE: 2021
